FAERS Safety Report 9890722 (Version 1)
Quarter: 2014Q1

REPORT INFORMATION
  Report Type: Spontaneous
  Country: US (occurrence: US)
  Receive Date: 20140212
  Receipt Date: 20140212
  Transmission Date: 20141002
  Serious: Yes (Hospitalization)
  Sender: FDA-Public Use
  Company Number: US-BAYER-2014-015421

PATIENT
  Age: 74 Year
  Sex: Male

DRUGS (1)
  1. SORAFENIB (RAF KINASE INHIBITOR) [Suspect]
     Indication: HEPATOCELLULAR CARCINOMA
     Dosage: 200 MG, BID
     Dates: start: 200709, end: 200804

REACTIONS (5)
  - Nausea [None]
  - Vomiting [None]
  - Chest pain [None]
  - Abdominal pain [None]
  - Performance status decreased [Recovering/Resolving]
